FAERS Safety Report 24446534 (Version 1)
Quarter: 2024Q4

REPORT INFORMATION
  Report Type: Spontaneous
  Country: US (occurrence: None)
  Receive Date: 20241016
  Receipt Date: 20241016
  Transmission Date: 20250115
  Serious: Yes (Death, Life-Threatening, Hospitalization, Disabling)
  Sender: Public
  Company Number: None

PATIENT
  Sex: Female
  Weight: 54 kg

DRUGS (18)
  1. DOCETAXEL [Suspect]
     Active Substance: DOCETAXEL
     Indication: Breast cancer
     Dosage: OTHER FREQUENCY : EVERY 3 WEEKS;?
     Route: 042
     Dates: start: 20240711, end: 20240912
  2. CARBOPLATIN [Suspect]
     Active Substance: CARBOPLATIN
     Indication: Breast cancer
     Dates: start: 20240711, end: 20240919
  3. PERTUZUMAB [Suspect]
     Active Substance: PERTUZUMAB
  4. TRASTUZUMAB [Suspect]
     Active Substance: TRASTUZUMAB
  5. LEVOTHYROXINE [Concomitant]
     Active Substance: LEVOTHYROXINE
  6. ROSUVASTATIN [Concomitant]
     Active Substance: ROSUVASTATIN
  7. HUMALOG [Concomitant]
     Active Substance: INSULIN LISPRO
  8. MOUNJARO [Concomitant]
     Active Substance: TIRZEPATIDE
  9. LOSARTAN [Concomitant]
     Active Substance: LOSARTAN
  10. COMPAZINE [Concomitant]
     Active Substance: PROCHLORPERAZINE MALEATE
  11. Ondansatron [Concomitant]
  12. DEXAMETHASONE [Concomitant]
     Active Substance: DEXAMETHASONE
  13. DOCETAXEL [Concomitant]
     Active Substance: DOCETAXEL
  14. BUPROPION [Concomitant]
     Active Substance: BUPROPION
  15. MAGNESIUM [Concomitant]
     Active Substance: MAGNESIUM
  16. VITAMIN B COMPLEX [Concomitant]
     Active Substance: CYANOCOBALAMIN\DEXPANTHENOL\NIACINAMIDE\PYRIDOXINE HYDROCHLORIDE\RIBOFLAVIN 5^-PHOSPHATE SODIUM\THIA
  17. POTASSIUM [Concomitant]
     Active Substance: POTASSIUM
  18. THC gummies [Concomitant]

REACTIONS (4)
  - Depression [None]
  - Anxiety [None]
  - Suicidal ideation [None]
  - Completed suicide [None]
